FAERS Safety Report 5107114-1 (Version None)
Quarter: 2006Q3

REPORT INFORMATION
  Report Type: 
  Country: None (occurrence: None)
  Receive Date: 20060913
  Receipt Date: 20060828
  Transmission Date: 20061208
  Serious: Yes (Hospitalization)
  Sender: FDA-Public Use
  Company Number: US200608006640

PATIENT
  Age: 51 Year
  Sex: Female

DRUGS (14)
  1. CYMBALTA [Suspect]
     Indication: PAIN IN EXTREMITY
     Dosage: SEE IMAGE
     Dates: start: 20060201, end: 20060501
  2. CYMBALTA [Suspect]
     Indication: PAIN IN EXTREMITY
     Dosage: SEE IMAGE
     Dates: start: 20060501, end: 20060601
  3. ZYRTEC-D 12 HOUR [Concomitant]
  4. ULTRAM [Concomitant]
  5. TEGRETOL [Concomitant]
  6. NABUMETONE [Concomitant]
  7. CLONAZEPAM [Concomitant]
  8. LORAGA (LACTULOSE) [Concomitant]
  9. AMBIEN [Concomitant]
  10. STOOL SOFTENER (DOCUSATE SODIUM) [Concomitant]
  11. BACLOFEN [Concomitant]
  12. MORPHINE SULFATE [Concomitant]
  13. ASPIRIN [Concomitant]
  14. CALCIUM GLUCONATE [Concomitant]

REACTIONS (3)
  - FALL [None]
  - MAJOR DEPRESSION [None]
  - URINARY INCONTINENCE [None]
